FAERS Safety Report 18708740 (Version 1)
Quarter: 2021Q1

REPORT INFORMATION
  Report Type: Spontaneous
  Country: FR (occurrence: FR)
  Receive Date: 20210106
  Receipt Date: 20210106
  Transmission Date: 20210419
  Serious: Yes (Hospitalization)
  Sender: FDA-Public Use
  Company Number: FR-009507513-2012FRA012549

PATIENT
  Age: 87 Year
  Sex: Female

DRUGS (2)
  1. OZURDEX [Suspect]
     Active Substance: DEXAMETHASONE
     Indication: CORNEAL GRAFT REJECTION
     Dosage: 700 MICROGRAM, ONCE (1 TOTAL), INTRAVITREAL IMPLANT WITH APPLICATOR
     Route: 047
     Dates: start: 20200918, end: 20200918
  2. CELESTENE [BETAMETHASONE] [Suspect]
     Active Substance: BETAMETHASONE
     Indication: CORNEAL GRAFT REJECTION
     Dosage: 2 DOSAGE FORM, 1 DAY (QD)
     Route: 047
     Dates: start: 20201023, end: 20201026

REACTIONS (1)
  - Diabetes mellitus inadequate control [Recovering/Resolving]

NARRATIVE: CASE EVENT DATE: 20201023
